FAERS Safety Report 6300242-4 (Version None)
Quarter: 2009Q3

REPORT INFORMATION
  Report Type: 
  Country: None (occurrence: None)
  Receive Date: 20090803
  Receipt Date: 20090720
  Transmission Date: 20100115
  Serious: Yes (Other)
  Sender: FDA-Public Use
  Company Number: 2009009060

PATIENT
  Sex: Female

DRUGS (4)
  1. TREANDA [Suspect]
     Indication: MYELOMA RECURRENCE
     Dosage: 125 MG
  2. DEXAMETHASONE TAB [Concomitant]
  3. VELCADE [Concomitant]
  4. THALIDOMIDE [Concomitant]

REACTIONS (1)
  - BONE MARROW FAILURE [None]
